FAERS Safety Report 26150934 (Version 1)
Quarter: 2025Q4

REPORT INFORMATION
  Report Type: Report from Study
  Country: CN (occurrence: CN)
  Receive Date: 20251212
  Receipt Date: 20251212
  Transmission Date: 20260117
  Serious: Yes (Hospitalization)
  Sender: ACCORD
  Company Number: CN-Accord-517556

PATIENT
  Age: 1 Year
  Sex: Male

DRUGS (1)
  1. CLONAZEPAM [Suspect]
     Active Substance: CLONAZEPAM
     Dosage: SPECIFIC DOSE UNKNOWN
     Dates: start: 2024

REACTIONS (4)
  - Eyelid ptosis [Recovered/Resolved]
  - Accidental overdose [Unknown]
  - Balance disorder [Recovered/Resolved]
  - Dysarthria [Recovered/Resolved]

NARRATIVE: CASE EVENT DATE: 20240401
